FAERS Safety Report 6207935-8 (Version None)
Quarter: 2009Q2

REPORT INFORMATION
  Report Type: 
  Country: None (occurrence: None)
  Receive Date: 20090529
  Receipt Date: 20080512
  Transmission Date: 20091009
  Serious: No
  Sender: FDA-Public Use
  Company Number: A0727700A

PATIENT
  Age: 58 Year
  Sex: Female

DRUGS (2)
  1. VENTOLIN [Suspect]
     Indication: DRUG USE FOR UNKNOWN INDICATION
     Route: 055
     Dates: start: 20080505
  2. AMOXICILLIN [Concomitant]
     Indication: DRUG USE FOR UNKNOWN INDICATION
     Route: 048

REACTIONS (2)
  - RASH [None]
  - URTICARIA [None]
